FAERS Safety Report 5960892-1 (Version None)
Quarter: 2008Q4

REPORT INFORMATION
  Report Type: 
  Country: None (occurrence: None)
  Receive Date: 20081118
  Receipt Date: 20081105
  Transmission Date: 20090506
  Serious: Yes (Other)
  Sender: FDA-Public Use
  Company Number: JPI-P-004453

PATIENT
  Age: 24 Year
  Sex: Male

DRUGS (4)
  1. LUVOX [Suspect]
     Indication: SOCIAL PHOBIA
     Dosage: 25 MG (25 MG, 1 IN 1 D), ORAL, 50 MG (50 MG, 1 IN 1 D) ,ORAL, 100 MG (100 MG, 1 IN 1 D) ,ORAL, 150 M
     Route: 048
     Dates: start: 20060210, end: 20060223
  2. LUVOX [Suspect]
     Indication: SOCIAL PHOBIA
     Dosage: 25 MG (25 MG, 1 IN 1 D), ORAL, 50 MG (50 MG, 1 IN 1 D) ,ORAL, 100 MG (100 MG, 1 IN 1 D) ,ORAL, 150 M
     Route: 048
     Dates: start: 20060224, end: 20060310
  3. LUVOX [Suspect]
     Indication: SOCIAL PHOBIA
     Dosage: 25 MG (25 MG, 1 IN 1 D), ORAL, 50 MG (50 MG, 1 IN 1 D) ,ORAL, 100 MG (100 MG, 1 IN 1 D) ,ORAL, 150 M
     Route: 048
     Dates: start: 20060311, end: 20060324
  4. LUVOX [Suspect]
     Indication: SOCIAL PHOBIA
     Dosage: 25 MG (25 MG, 1 IN 1 D), ORAL, 50 MG (50 MG, 1 IN 1 D) ,ORAL, 100 MG (100 MG, 1 IN 1 D) ,ORAL, 150 M
     Route: 048
     Dates: start: 20060325, end: 20080801

REACTIONS (1)
  - SCHIZOPHRENIA [None]
